FAERS Safety Report 5002625-1 (Version None)
Quarter: 2006Q2

REPORT INFORMATION
  Report Type: 
  Country: None (occurrence: None)
  Receive Date: 20060510
  Receipt Date: 20060427
  Transmission Date: 20061013
  Serious: Yes (Hospitalization)
  Sender: FDA-Public Use
  Company Number: 2006US000185

PATIENT
  Age: 5 Year
  Sex: Male

DRUGS (2)
  1. PROTOPIC [Suspect]
     Indication: ECZEMA
     Dosage: BID, TOPICAL
     Route: 061
     Dates: start: 20020101, end: 20020101
  2. PROTOPIC [Suspect]
     Indication: ECZEMA
     Dosage: BID, TOPICAL
     Route: 061
     Dates: start: 20051101, end: 20051201

REACTIONS (11)
  - BLOOD IMMUNOGLOBULIN G DECREASED [None]
  - CROUP INFECTIOUS [None]
  - DRUG HYPERSENSITIVITY [None]
  - EAR INFECTION [None]
  - IMMUNE SYSTEM DISORDER [None]
  - IMPETIGO [None]
  - INFECTION [None]
  - MALAISE [None]
  - NASOPHARYNGITIS [None]
  - RESPIRATORY TRACT INFECTION [None]
  - SKIN INFECTION [None]
